FAERS Safety Report 4673657-8 (Version None)
Quarter: 2005Q2

REPORT INFORMATION
  Report Type: 
  Country: None (occurrence: None)
  Receive Date: 20050523
  Receipt Date: 20040702
  Transmission Date: 20051028
  Serious: No
  Sender: FDA-Public Use
  Company Number: MED000168

PATIENT
  Sex: 0

DRUGS (1)
  1. LACTATED RINGER'S [Suspect]
     Dosage: CONTINUOUS; INTRAVENOUS
     Route: 042
     Dates: start: 20040701, end: 20040701

REACTIONS (1)
  - BURNING SENSATION [None]
